FAERS Safety Report 5035022-3 (Version None)
Quarter: 2006Q2

REPORT INFORMATION
  Report Type: 
  Country: None (occurrence: None)
  Receive Date: 20060518
  Receipt Date: 20051109
  Transmission Date: 20061013
  Serious: Yes (Other)
  Sender: FDA-Public Use
  Company Number: HQWYE510711NOV05

PATIENT
  Age: 7 Year
  Sex: Female

DRUGS (1)
  1. SUPRAX [Suspect]
     Dosage: ORAL
     Route: 048
     Dates: start: 20050816, end: 20050817

REACTIONS (1)
  - SKIN EXFOLIATION [None]
